FAERS Safety Report 8492581-6 (Version None)
Quarter: 2012Q3

REPORT INFORMATION
  Report Type: 
  Country: None (occurrence: None)
  Receive Date: 20120706
  Receipt Date: 20120629
  Transmission Date: 20120928
  Serious: Yes (Death, Hospitalization, Other)
  Sender: FDA-Public Use
  Company Number: DE-TEVA-341353GER

PATIENT
  Sex: Female
  Weight: 70 kg

DRUGS (10)
  1. DEXAMETHASONE SODIUM PHOSPHATE [Concomitant]
     Route: 048
     Dates: start: 20111206
  2. CLEMASTINE [Concomitant]
     Indication: PREMEDICATION
     Route: 042
     Dates: start: 20111207
  3. EPOETIN ZETA [Concomitant]
     Route: 058
     Dates: start: 20111130
  4. GRANOCYTE [Concomitant]
     Route: 058
     Dates: start: 20111208
  5. DOCETAXEL [Suspect]
     Indication: BREAST CANCER
     Dosage: 179 MILLIGRAM;
     Route: 041
     Dates: start: 20111207, end: 20111207
  6. DOCETAXEL [Suspect]
     Dosage: 179 MILLIGRAM;
     Route: 041
     Dates: start: 20111228, end: 20111228
  7. DOCETAXEL [Suspect]
     Dosage: 134.25 MILLIGRAM;
     Route: 041
     Dates: start: 20120118, end: 20120118
  8. GEMCITABINE [Suspect]
     Indication: BREAST CANCER
     Route: 042
     Dates: start: 20111130
  9. DEXAMETHASONE SODIUM PHOSPHATE [Concomitant]
     Route: 042
     Dates: start: 20111130
  10. RANITIDINE [Concomitant]
     Route: 042
     Dates: start: 20111207

REACTIONS (4)
  - NEOPLASM PROGRESSION [None]
  - PULMONARY EMBOLISM [None]
  - DEEP VEIN THROMBOSIS [None]
  - PANCYTOPENIA [None]
